FAERS Safety Report 23366037 (Version 1)
Quarter: 2024Q1

REPORT INFORMATION
  Report Type: Spontaneous
  Country: US (occurrence: None)
  Receive Date: 20240104
  Receipt Date: 20240104
  Transmission Date: 20240410
  Serious: Yes (Life-Threatening)
  Sender: FDA-Public Use
  Company Number: None

PATIENT
  Age: 59 Year
  Sex: Male
  Weight: 78.3 kg

DRUGS (5)
  1. CLOZAPINE [Suspect]
     Active Substance: CLOZAPINE
     Indication: Schizoaffective disorder
     Dates: start: 19970601, end: 20230806
  2. SEROQUEL [Concomitant]
     Active Substance: QUETIAPINE FUMARATE
  3. DIAZEPAM [Concomitant]
     Active Substance: DIAZEPAM
  4. ELIQUIS [Concomitant]
     Active Substance: APIXABAN
  5. VITAMIN C [Concomitant]
     Active Substance: ASCORBIC ACID

REACTIONS (5)
  - Acute leukaemia [None]
  - Drug withdrawal syndrome [None]
  - Weight decreased [None]
  - Hypophagia [None]
  - Insomnia [None]

NARRATIVE: CASE EVENT DATE: 20230611
